FAERS Safety Report 6853108-5 (Version None)
Quarter: 2010Q3

REPORT INFORMATION
  Report Type: 
  Country: None (occurrence: None)
  Receive Date: 20100717
  Receipt Date: 20071130
  Transmission Date: 20110219
  Serious: No
  Sender: FDA-Public Use
  Company Number: US-PFIZER INC-2007102829

PATIENT
  Sex: Female
  Weight: 61.818 kg

DRUGS (14)
  1. CHANTIX [Suspect]
     Indication: SMOKING CESSATION THERAPY
     Dates: start: 20071101
  2. XANAX [Concomitant]
  3. ALEVE (CAPLET) [Concomitant]
  4. COUMADIN [Concomitant]
  5. TEMAZEPAM [Concomitant]
  6. FISH OIL [Concomitant]
  7. PRENATAL VITAMINS [Concomitant]
  8. SEROQUEL [Concomitant]
  9. POTASSIUM CHLORIDE [Concomitant]
  10. HERBAL NOS/MINERALS NOS [Concomitant]
  11. VICODIN [Concomitant]
  12. ALL OTHER THERAPEUTIC PRODUCTS [Concomitant]
  13. PREMARIN [Concomitant]
  14. VYTORIN [Concomitant]

REACTIONS (3)
  - HEADACHE [None]
  - INSOMNIA [None]
  - NIGHTMARE [None]
